FAERS Safety Report 8548246-5 (Version None)
Quarter: 2012Q3

REPORT INFORMATION
  Report Type: 
  Country: None (occurrence: None)
  Receive Date: 20120730
  Receipt Date: 20120723
  Transmission Date: 20120928
  Serious: Yes (Hospitalization, Other)
  Sender: FDA-Public Use
  Company Number: US-009507513-1206USA03238

PATIENT

DRUGS (6)
  1. VYTORIN [Suspect]
     Route: 048
     Dates: end: 20120401
  2. CELECOXIB [Concomitant]
     Indication: DEPRESSION
  3. LUPRON DEPOT [Suspect]
     Indication: PROSTATE CANCER
     Dates: start: 20100101, end: 20111201
  4. CELEXA [Concomitant]
  5. KEPPRA [Concomitant]
     Indication: CONVULSION
  6. SYNTHROID [Concomitant]
     Indication: HYPOTHYROIDISM

REACTIONS (9)
  - APHASIA [None]
  - MUSCULOSKELETAL DISORDER [None]
  - HYPERTENSION [None]
  - BALANCE DISORDER [None]
  - ASTHENIA [None]
  - FALL [None]
  - CEREBROVASCULAR ACCIDENT [None]
  - MOTOR DYSFUNCTION [None]
  - NAUSEA [None]
